FAERS Safety Report 14615092 (Version 2)
Quarter: 2018Q1

REPORT INFORMATION
  Report Type: Spontaneous
  Country: US (occurrence: US)
  Receive Date: 20180308
  Receipt Date: 20180323
  Transmission Date: 20180509
  Serious: Yes (Other)
  Sender: FDA-Public Use
  Company Number: US-AKORN PHARMACEUTICALS-2018AKN00272

PATIENT
  Age: 14 Year
  Sex: Male
  Weight: 84.1 kg

DRUGS (2)
  1. MYORISAN [Suspect]
     Active Substance: ISOTRETINOIN
     Indication: ACNE CYSTIC
     Dosage: 30 MG, 2X/DAY
     Dates: start: 20171227, end: 20180201
  2. PREDNISONE. [Suspect]
     Active Substance: PREDNISONE
     Indication: ACNE
     Dosage: UNK
     Dates: start: 201801

REACTIONS (2)
  - Acne [Unknown]
  - Depressed mood [Recovering/Resolving]

NARRATIVE: CASE EVENT DATE: 201801
